FAERS Safety Report 6327248-3 (Version None)
Quarter: 2009Q3

REPORT INFORMATION
  Report Type: 
  Country: None (occurrence: None)
  Receive Date: 20090825
  Receipt Date: 20090817
  Transmission Date: 20100115
  Serious: Yes (Death)
  Sender: FDA-Public Use
  Company Number: JP-TEVA-206676ISR

PATIENT
  Sex: Female

DRUGS (8)
  1. CISPLATIN [Suspect]
     Indication: NASOPHARYNGEAL CANCER
     Dates: start: 20090811, end: 20090811
  2. ETOPOSIDE [Suspect]
     Indication: NASOPHARYNGEAL CANCER
     Route: 042
     Dates: start: 20090811, end: 20090813
  3. GRANISETRON HYDROCHLORIDE [Concomitant]
     Route: 042
     Dates: start: 20090811, end: 20090813
  4. DEXAMETHASONE SODIUM PHOSPHATE [Concomitant]
     Route: 042
     Dates: start: 20090811, end: 20090813
  5. FUROSEMIDE [Concomitant]
     Route: 042
     Dates: start: 20090811, end: 20090811
  6. MANNITOL [Concomitant]
     Route: 042
     Dates: start: 20090811, end: 20090811
  7. CARBAZOCHROME SODIUM SULFONATE [Concomitant]
     Route: 042
     Dates: start: 20090810, end: 20090811
  8. TRANEXAMIC ACID [Concomitant]
     Route: 042
     Dates: start: 20090810, end: 20090811

REACTIONS (1)
  - ACUTE RESPIRATORY DISTRESS SYNDROME [None]
